FAERS Safety Report 7578497-8 (Version None)
Quarter: 2011Q2

REPORT INFORMATION
  Report Type: 
  Country: None (occurrence: None)
  Receive Date: 20110628
  Receipt Date: 20110613
  Transmission Date: 20111010
  Serious: No
  Sender: FDA-Public Use
  Company Number: US-B.I. PHARMACEUTICALS,INC./RIDGEFIELD-2011-BP-15419BP

PATIENT
  Age: 55 Year
  Sex: Female

DRUGS (25)
  1. SINGULAIR [Concomitant]
     Indication: CHRONIC OBSTRUCTIVE PULMONARY DISEASE
  2. LASIX [Concomitant]
     Indication: CARDIAC FAILURE CONGESTIVE
  3. POTASSIUM [Concomitant]
     Indication: ELECTROLYTE SUBSTITUTION THERAPY
  4. NITROGLYCERIN [Concomitant]
     Indication: CHEST PAIN
  5. NYSTATIN [Concomitant]
     Indication: OESOPHAGITIS
  6. OMEPRAZOLE [Concomitant]
     Indication: GASTROOESOPHAGEAL REFLUX DISEASE
  7. PERCOCET [Concomitant]
     Indication: PAIN
  8. NASACORT [Concomitant]
     Indication: MULTIPLE ALLERGIES
  9. THEOPHYLLINE [Concomitant]
     Indication: CHRONIC OBSTRUCTIVE PULMONARY DISEASE
  10. XANAX [Concomitant]
     Indication: ANXIETY
     Dosage: 3 MG
  11. SYMBICORT [Concomitant]
     Indication: CHRONIC OBSTRUCTIVE PULMONARY DISEASE
  12. SPIRIVA [Suspect]
     Indication: EMPHYSEMA
     Dosage: 18 MCG
     Route: 055
     Dates: start: 20090101
  13. CYMBALTA [Concomitant]
     Indication: DEPRESSION
     Dosage: 120 MG
  14. OXYCONTIN [Concomitant]
     Indication: PAIN
  15. SOMA [Concomitant]
  16. IPRATROPIUM BROMIDE [Concomitant]
     Indication: CHRONIC OBSTRUCTIVE PULMONARY DISEASE
  17. CARAFATE [Concomitant]
     Indication: IRRITABLE BOWEL SYNDROME
  18. MULTI-VITAMINS [Concomitant]
     Indication: PROPHYLAXIS
  19. METAMUCIL-2 [Concomitant]
     Indication: IRRITABLE BOWEL SYNDROME
  20. MIRALAX [Concomitant]
     Indication: IRRITABLE BOWEL SYNDROME
  21. TAMARINE [Concomitant]
     Route: 048
  22. VALTREX [Concomitant]
  23. VIT C [Concomitant]
     Indication: PROPHYLAXIS
  24. XOPENEX [Concomitant]
     Indication: CHRONIC OBSTRUCTIVE PULMONARY DISEASE
  25. CARAFATE [Concomitant]
     Indication: GASTROOESOPHAGEAL REFLUX DISEASE

REACTIONS (4)
  - UNEVALUABLE EVENT [None]
  - VISION BLURRED [None]
  - TREMOR [None]
  - DIPLOPIA [None]
